FAERS Safety Report 6072468-9 (Version None)
Quarter: 2009Q1

REPORT INFORMATION
  Report Type: 
  Country: None (occurrence: None)
  Receive Date: 20090210
  Receipt Date: 20090130
  Transmission Date: 20090719
  Serious: Yes (Hospitalization)
  Sender: FDA-Public Use
  Company Number: US-BAXTER-2009BH001893

PATIENT
  Age: 57 Year
  Sex: Male

DRUGS (1)
  1. DIANEAL [Suspect]
     Indication: PERITONEAL DIALYSIS
     Route: 033

REACTIONS (6)
  - DECREASED APPETITE [None]
  - DYSPNOEA [None]
  - OEDEMA PERIPHERAL [None]
  - PERITONEAL DIALYSIS COMPLICATION [None]
  - PERITONEAL MEMBRANE FAILURE [None]
  - WEIGHT DECREASED [None]
